FAERS Safety Report 7153196-5 (Version None)
Quarter: 2010Q4

REPORT INFORMATION
  Report Type: 
  Country: None (occurrence: None)
  Receive Date: 20101213
  Receipt Date: 20101201
  Transmission Date: 20110411
  Serious: Yes (Hospitalization, Other)
  Sender: FDA-Public Use
  Company Number: US-ELI_LILLY_AND_COMPANY-US201012002374

PATIENT
  Age: 56 Year
  Sex: Female

DRUGS (1)
  1. ADCIRCA [Suspect]
     Dosage: UNK, UNKNOWN

REACTIONS (4)
  - CHEST PAIN [None]
  - DYSPNOEA [None]
  - NEPHROPATHY [None]
  - PERICARDITIS [None]
